FAERS Safety Report 24152153 (Version 2)
Quarter: 2024Q4

REPORT INFORMATION
  Report Type: Spontaneous
  Country: US (occurrence: US)
  Receive Date: 20240730
  Receipt Date: 20241030
  Transmission Date: 20250114
  Serious: Yes (Death, Other)
  Sender: INCYTE
  Company Number: US-INCYTE CORPORATION-2024IN007918

PATIENT

DRUGS (1)
  1. JAKAFI [Suspect]
     Active Substance: RUXOLITINIB
     Dosage: 10 MILLIGRAM, BID
     Route: 048
     Dates: start: 20240103

REACTIONS (3)
  - Brain injury [Fatal]
  - Hypoxia [Unknown]
  - Catheter site haemorrhage [Unknown]
